FAERS Safety Report 20474098 (Version 2)
Quarter: 2022Q1

REPORT INFORMATION
  Report Type: Spontaneous
  Country: PL (occurrence: PL)
  Receive Date: 20220215
  Receipt Date: 20220309
  Transmission Date: 20220423
  Serious: Yes (Death, Hospitalization)
  Sender: FDA-Public Use
  Company Number: PL-CELGENE-POL-20211202101

PATIENT
  Age: 66 Year
  Sex: Female

DRUGS (36)
  1. VENETOCLAX [Suspect]
     Active Substance: VENETOCLAX
     Indication: Acute myeloid leukaemia
     Route: 065
     Dates: start: 20210712, end: 20210712
  2. VENETOCLAX [Suspect]
     Active Substance: VENETOCLAX
     Route: 065
     Dates: start: 20211116
  3. AZACITIDINE [Suspect]
     Active Substance: AZACITIDINE
     Indication: Acute myeloid leukaemia
     Route: 065
     Dates: start: 20210712
  4. PEVONEDISTAT [Suspect]
     Active Substance: PEVONEDISTAT
     Indication: Acute myeloid leukaemia
     Route: 065
     Dates: start: 20210712, end: 20210712
  5. NADROPARIN [Concomitant]
     Active Substance: NADROPARIN
     Indication: Thrombosis prophylaxis
     Route: 065
  6. LEVOFLOXACIN [Concomitant]
     Active Substance: LEVOFLOXACIN
     Indication: Infection prophylaxis
     Route: 065
     Dates: start: 20210722, end: 20211030
  7. LEVOFLOXACIN [Concomitant]
     Active Substance: LEVOFLOXACIN
     Route: 065
     Dates: start: 20211104, end: 20211114
  8. DEXTROSE [Concomitant]
     Active Substance: DEXTROSE
     Indication: Prophylaxis
     Route: 065
     Dates: start: 20211102, end: 20211102
  9. POTASSIUM BICARBONATE\POTASSIUM CITRATE [Concomitant]
     Active Substance: POTASSIUM BICARBONATE\POTASSIUM CITRATE
     Indication: Prophylaxis
     Route: 065
     Dates: start: 20210722
  10. AMOXICILLIN [Concomitant]
     Active Substance: AMOXICILLIN
     Indication: Inflammation
     Route: 065
     Dates: start: 20210825
  11. TRANEXAMIC ACID [Concomitant]
     Active Substance: TRANEXAMIC ACID
     Indication: Thrombocytopenia
     Route: 065
     Dates: start: 20210726
  12. CASPOFUNGIN ACETATE [Concomitant]
     Active Substance: CASPOFUNGIN ACETATE
     Indication: Antifungal prophylaxis
     Route: 065
  13. ZOLPIDEM [Concomitant]
     Active Substance: ZOLPIDEM TARTRATE
     Indication: Insomnia
     Route: 065
     Dates: start: 20210802
  14. CEFUROXIME [Concomitant]
     Active Substance: CEFUROXIME
     Indication: Cough
     Route: 065
     Dates: start: 20211116
  15. CEFUROXIME [Concomitant]
     Active Substance: CEFUROXIME
     Indication: Infection
  16. PANTOPRAZOLE SODIUM [Concomitant]
     Active Substance: PANTOPRAZOLE SODIUM
     Indication: Dyspepsia
     Route: 065
     Dates: start: 20210910
  17. MELOXICAM [Concomitant]
     Active Substance: MELOXICAM
     Indication: Product used for unknown indication
     Route: 048
     Dates: end: 20211031
  18. BETAHISTINE [Concomitant]
     Active Substance: BETAHISTINE
     Indication: Vertigo
     Route: 065
  19. VORICONAZOLE [Concomitant]
     Active Substance: VORICONAZOLE
     Indication: Neutropenia
     Route: 065
     Dates: start: 20211006
  20. LEVOFLOXACIN [Concomitant]
     Active Substance: LEVOFLOXACIN
     Indication: Infection prophylaxis
     Route: 065
     Dates: start: 20210722
  21. ENOXAPARIN SODIUM [Concomitant]
     Active Substance: ENOXAPARIN SODIUM
     Indication: Prophylaxis
     Route: 065
     Dates: start: 20211102
  22. METAMIZOLE SODIUM [Concomitant]
     Active Substance: METAMIZOLE SODIUM
     Indication: Lumbar puncture
     Route: 048
     Dates: start: 20211104, end: 20211104
  23. GRANULOCYTE COLONY-STIMULATING FACTOR NOS [Concomitant]
     Active Substance: GRANULOCYTE COLONY-STIMULATING FACTOR NOS
     Indication: Neutropenia
     Route: 048
     Dates: start: 20211029, end: 20211029
  24. POLHUMIN MIX-3 [Concomitant]
     Indication: Diabetes mellitus
     Route: 065
     Dates: start: 20211031
  25. GARDIMAX HERBALL [Concomitant]
     Indication: Cough
     Route: 065
     Dates: start: 20211122
  26. ACYCLOVIR [Concomitant]
     Active Substance: ACYCLOVIR
     Indication: Antiviral treatment
     Route: 065
     Dates: start: 20210630
  27. ACYCLOVIR [Concomitant]
     Active Substance: ACYCLOVIR
     Indication: Infection prophylaxis
     Route: 065
     Dates: start: 20211116
  28. THIOCODIN [Concomitant]
     Indication: Cough
     Route: 065
     Dates: start: 20211122, end: 20211125
  29. THIOCODIN [Concomitant]
     Indication: Infection
  30. TRAMADOL [Concomitant]
     Active Substance: TRAMADOL
     Indication: Pain in extremity
     Route: 065
     Dates: start: 20211103, end: 20211103
  31. CLATRA [Concomitant]
     Indication: Allergy prophylaxis
     Route: 048
     Dates: end: 20211031
  32. ACETAMINOPHEN\TRAMADOL HYDROCHLORIDE [Concomitant]
     Active Substance: ACETAMINOPHEN\TRAMADOL HYDROCHLORIDE
     Indication: Pain in extremity
     Route: 048
     Dates: start: 20211031, end: 20211102
  33. NATRIUM BICARBONICUM [Concomitant]
     Indication: Prophylaxis
     Route: 065
     Dates: start: 20211102, end: 20211110
  34. ATORVASTATIN CALCIUM [Concomitant]
     Active Substance: ATORVASTATIN CALCIUM
     Indication: Hypercholesterolaemia
     Route: 065
  35. TRAZODONE HYDROCHLORIDE [Concomitant]
     Active Substance: TRAZODONE HYDROCHLORIDE
     Indication: Insomnia
     Route: 065
     Dates: start: 20210802
  36. POTASSIUM CHLORIDE [Concomitant]
     Active Substance: POTASSIUM CHLORIDE
     Indication: Prophylaxis
     Route: 065
     Dates: start: 20210910

REACTIONS (1)
  - Infection [Fatal]

NARRATIVE: CASE EVENT DATE: 20211125
